FAERS Safety Report 7618022-6 (Version None)
Quarter: 2011Q3

REPORT INFORMATION
  Report Type: 
  Country: None (occurrence: None)
  Receive Date: 20110718
  Receipt Date: 20110715
  Transmission Date: 20111222
  Serious: Yes (Death, Other)
  Sender: FDA-Public Use
  Company Number: PHHY2011AU63440

PATIENT
  Sex: Female

DRUGS (1)
  1. ZOLEDRONOC ACID [Suspect]
     Dosage: UNK
     Route: 042
     Dates: start: 20100801

REACTIONS (5)
  - ACUTE MYELOID LEUKAEMIA [None]
  - FATIGUE [None]
  - DEATH [None]
  - DIZZINESS [None]
  - MALAISE [None]
